FAERS Safety Report 5381351-3 (Version None)
Quarter: 2007Q2

REPORT INFORMATION
  Report Type: 
  Country: None (occurrence: None)
  Receive Date: 20070629
  Receipt Date: 20070522
  Transmission Date: 20071010
  Serious: Yes (Other)
  Sender: FDA-Public Use
  Company Number: US-JNJFOC-20070505724

PATIENT
  Age: 84 Year
  Sex: Female

DRUGS (3)
  1. ULTRAM ER [Suspect]
     Indication: PAIN
     Dosage: 200 MG, IN 1 DAY, ORAL
     Route: 048
     Dates: start: 20070519, end: 20070519
  2. FUROSEMIDE (FUROSEMIDE) UNSPECIFIED [Concomitant]
  3. CELEBREX (CELECOXIB) UNSPECIFIED [Concomitant]

REACTIONS (3)
  - HYPERSOMNIA [None]
  - NAUSEA [None]
  - OEDEMA PERIPHERAL [None]
